FAERS Safety Report 16924268 (Version 1)
Quarter: 2019Q4

REPORT INFORMATION
  Report Type: Spontaneous
  Country: US (occurrence: US)
  Receive Date: 20190823
  Receipt Date: 20190823
  Transmission Date: 20200122
  Serious: No
  Sender: FDA-Public Use
  Company Number: None

PATIENT
  Sex: Female

DRUGS (1)
  1. PROLIA [Suspect]
     Active Substance: DENOSUMAB
     Dosage: ?          OTHER FREQUENCY:Q 6 MONTHS ;?
     Route: 058
     Dates: start: 20171129

REACTIONS (3)
  - Back pain [None]
  - Arthralgia [None]
  - Bone pain [None]
